FAERS Safety Report 14060689 (Version 3)
Quarter: 2020Q4

REPORT INFORMATION
  Report Type: Spontaneous
  Country: NL (occurrence: NL)
  Receive Date: 20171007
  Receipt Date: 20201111
  Transmission Date: 20210113
  Serious: Yes (Hospitalization)
  Sender: FDA-Public Use
  Company Number: NL-AUROBINDO-AUR-APL-2017-06852

PATIENT
  Age: 35 Year
  Sex: Female

DRUGS (3)
  1. MINOCYCLINE FILM-COATED TABLET [Suspect]
     Active Substance: MINOCYCLINE HYDROCHLORIDE
     Indication: SKIN LESION
     Dosage: 200 MILLIGRAM
     Route: 048
  2. MINOCYCLINE FILM-COATED TABLET [Suspect]
     Active Substance: MINOCYCLINE HYDROCHLORIDE
     Indication: SARCOIDOSIS
     Dosage: UNK
     Route: 065
  3. MINOCYCLINE FILM-COATED TABLET [Suspect]
     Active Substance: MINOCYCLINE HYDROCHLORIDE
     Dosage: 200 MILLIGRAM, ONCE A DAY
     Route: 048
     Dates: start: 2004, end: 2007

REACTIONS (2)
  - Thyroid disorder [Unknown]
  - Papillary thyroid cancer [Unknown]

NARRATIVE: CASE EVENT DATE: 2007
